FAERS Safety Report 14466193 (Version 1)
Quarter: 2018Q1

REPORT INFORMATION
  Report Type: Spontaneous
  Country: FR (occurrence: FR)
  Receive Date: 20180131
  Receipt Date: 20180131
  Transmission Date: 20180509
  Serious: Yes (Life-Threatening)
  Sender: FDA-Public Use
  Company Number: FR-AUROBINDO-AUR-APL-2018-002886

PATIENT
  Age: 33 Year
  Sex: Female

DRUGS (3)
  1. RHINOFLUIMUCIL [Suspect]
     Active Substance: ACETYLCYSTEINE\BENZALKONIUM CHLORIDE\TUAMINOHEPTANE SULFATE
     Indication: INFLUENZA LIKE ILLNESS
     Dosage: 2 DF, UNK
     Route: 045
     Dates: start: 201712, end: 201712
  2. HELICIDINE [Suspect]
     Active Substance: ESCARGOT
     Indication: INFLUENZA LIKE ILLNESS
     Dosage: ()
     Route: 048
     Dates: start: 201712, end: 201712
  3. PARACETAMOL [Suspect]
     Active Substance: ACETAMINOPHEN
     Indication: INFLUENZA LIKE ILLNESS
     Dosage: ()
     Route: 048
     Dates: start: 201712, end: 201712

REACTIONS (3)
  - Subarachnoid haemorrhage [Not Recovered/Not Resolved]
  - Coma [Recovered/Resolved]
  - Hydrocephalus [Recovering/Resolving]

NARRATIVE: CASE EVENT DATE: 20171228
